FAERS Safety Report 14563229 (Version 1)
Quarter: 2018Q1

REPORT INFORMATION
  Report Type: Spontaneous
  Country: FR (occurrence: FR)
  Receive Date: 20180222
  Receipt Date: 20180222
  Transmission Date: 20180509
  Serious: Yes (Hospitalization)
  Sender: FDA-Public Use
  Company Number: FR-SA-2018SA041067

PATIENT
  Age: 80 Year
  Sex: Female

DRUGS (13)
  1. DILTIAZEM. [Concomitant]
     Active Substance: DILTIAZEM
  2. HYDROCHLOROTHIAZIDE/TELMISARTAN [Concomitant]
  3. SERETIDE [Concomitant]
     Active Substance: FLUTICASONE PROPIONATE\SALMETEROL XINAFOATE
  4. ELIQUIS [Suspect]
     Active Substance: APIXABAN
     Indication: CEREBROVASCULAR ACCIDENT PROPHYLAXIS
     Route: 065
     Dates: start: 201602
  5. UVEDOSE [Concomitant]
     Active Substance: CHOLECALCIFEROL
  6. LOVENOX [Suspect]
     Active Substance: ENOXAPARIN SODIUM
     Dosage: DOSE:800 UNIT(S)
     Route: 065
  7. RILMENIDINE [Concomitant]
     Active Substance: RILMENIDINE
  8. DOLIPRANE [Concomitant]
     Active Substance: ACETAMINOPHEN
  9. INNOHEP [Suspect]
     Active Substance: TINZAPARIN SODIUM
     Route: 065
  10. GLYCEROL\PARAFFIN [Concomitant]
     Active Substance: GLYCERIN\PARAFFIN
  11. OMEPRAZOLE. [Concomitant]
     Active Substance: OMEPRAZOLE
  12. FLECTOR [Concomitant]
     Active Substance: DICLOFENAC EPOLAMINE
  13. FENOFIBRATE. [Concomitant]
     Active Substance: FENOFIBRATE

REACTIONS (2)
  - Contraindicated product administered [Unknown]
  - Arthropathy [Unknown]
